FAERS Safety Report 8794352 (Version 1)
Quarter: 2012Q4

REPORT INFORMATION
  Report Type: 
  Country: US (occurrence: US)
  Receive Date: 20120917
  Receipt Date: 20120917
  Transmission Date: 20130627
  Serious: Yes (Hospitalization)
  Sender: FDA-Public Use
  Company Number: PHEH2012US017862

PATIENT
  Age: 72 Year
  Sex: Female

DRUGS (3)
  1. ZOMETA [Suspect]
     Indication: MULTIPLE MYELOMA
  2. VELCADE [Suspect]
     Indication: MULTIPLE MYELOMA
  3. DECADRON [Suspect]
     Indication: MULTIPLE MYELOMA

REACTIONS (7)
  - Pneumonia [Unknown]
  - Dizziness [Recovered/Resolved]
  - Asthenia [Unknown]
  - Haemoptysis [Unknown]
  - Lung infiltration [Unknown]
  - Hypotension [Recovered/Resolved]
  - Dehydration [Unknown]
